FAERS Safety Report 8231584-3 (Version None)
Quarter: 2012Q1

REPORT INFORMATION
  Report Type: 
  Country: None (occurrence: None)
  Receive Date: 20120323
  Receipt Date: 20120315
  Transmission Date: 20120608
  Serious: Yes (Hospitalization)
  Sender: FDA-Public Use
  Company Number: US-INCYTE CORPORATION-2012IN000213

PATIENT
  Sex: Female
  Weight: 59 kg

DRUGS (11)
  1. JAKAFI [Suspect]
     Indication: MYELOFIBROSIS
     Dosage: 15 MG, BID
     Route: 048
     Dates: start: 20120112, end: 20120203
  2. PRAMIPEXOLE DIHYDROCHLORIDE [Concomitant]
     Dosage: 25 MG, QD, PRN
  3. GABAPENTIN [Concomitant]
     Dosage: 600 MG, QD
  4. AMLODIPINE [Concomitant]
     Dosage: 2.5 MG, QD
  5. JAKAFI [Suspect]
     Dosage: LOWER DOSE
  6. ANAGRELIDE HCL [Concomitant]
     Dosage: 5 MG, UNK
  7. PRILOSEC [Concomitant]
     Dosage: 40 MG, QD
  8. PROPRANOLOL [Concomitant]
     Dosage: 160 MG, QD
  9. MIRAPEX ER [Concomitant]
     Dosage: 75 MG, QD
  10. CARBIDOPA AND LEVODOPA [Concomitant]
     Dosage: 25/100, QD
  11. SPIRONOLACTONE [Concomitant]
     Dosage: 25 MG, QD

REACTIONS (6)
  - SPLENORENAL SHUNT [None]
  - PULMONARY CONGESTION [None]
  - HEPATIC ENCEPHALOPATHY [None]
  - SPLENOMEGALY [None]
  - HEPATOMEGALY [None]
  - SPLENIC VARICES [None]
